FAERS Safety Report 8107418-4 (Version None)
Quarter: 2012Q1

REPORT INFORMATION
  Report Type: 
  Country: None (occurrence: None)
  Receive Date: 20120202
  Receipt Date: 20120127
  Transmission Date: 20120608
  Serious: Yes (Death, Life-Threatening, Hospitalization, Other)
  Sender: FDA-Public Use
  Company Number: JP-ELI_LILLY_AND_COMPANY-JP201111005710

PATIENT
  Sex: Male
  Weight: 69 kg

DRUGS (1)
  1. GEMZAR [Suspect]
     Indication: PANCREATIC CARCINOMA
     Dosage: UNK
     Route: 042
     Dates: start: 20110324, end: 20110408

REACTIONS (6)
  - NEOPLASM PROGRESSION [None]
  - SYSTEMIC MYCOSIS [None]
  - SMALL INTESTINAL PERFORATION [None]
  - INFECTIOUS PERITONITIS [None]
  - RENAL FAILURE ACUTE [None]
  - METASTASES TO PERITONEUM [None]
